FAERS Safety Report 10395183 (Version 2)
Quarter: 2014Q2

REPORT INFORMATION
  Report Type: Spontaneous
  Country: US (occurrence: None)
  Receive Date: 20130328
  Receipt Date: 20140604
  Transmission Date: 20141212
  Serious: Yes (Hospitalization)
  Sender: FDA-Public Use
  Company Number: 20120423CINRY2899

PATIENT
  Age: 49 Year
  Sex: Female

DRUGS (2)
  1. CINRYZE (C1 ESTERASE INHIBITOR (HUMAN) 500 UNIT, INJECTION FOR INFUSIOIN) (C1 ESTERASE INHIBITOR (HUMAN)) [Suspect]
     Indication: HEREDITARY ANGIOEDEMA
     Route: 042
     Dates: start: 201002
  2. CINRYZE (C1 ESTERASE INHIBITOR (HUMAN) 500 UNIT, INJECTION FOR INFUSIOIN) (C1 ESTERASE INHIBITOR (HUMAN)) [Suspect]
     Route: 042
     Dates: start: 201002

REACTIONS (2)
  - Hereditary angioedema [None]
  - Drug dose omission [None]
